FAERS Safety Report 7570323-6 (Version None)
Quarter: 2011Q2

REPORT INFORMATION
  Report Type: 
  Country: None (occurrence: None)
  Receive Date: 20110622
  Receipt Date: 20110622
  Transmission Date: 20111010
  Serious: No
  Sender: FDA-Public Use
  Company Number: None

PATIENT
  Sex: Female
  Weight: 70.4 kg

DRUGS (6)
  1. VINCRISTINE SULFATE [Suspect]
     Dosage: 1 MG
  2. DAUNORUBICIN HCL [Suspect]
     Dosage: 156 MG
  3. METHOTREXATE [Suspect]
     Dosage: 15 MG
  4. MERCAPTOPURINE [Suspect]
     Dosage: 3500 MG
  5. DOXORUBICIN HYDROCHLORIDE [Suspect]
     Dosage: 120 MG
  6. CYCLOPHOSPHAMIDE [Suspect]
     Dosage: 4690 MG

REACTIONS (3)
  - TREATMENT RELATED SECONDARY MALIGNANCY [None]
  - OSTEONECROSIS [None]
  - ACUTE MYELOID LEUKAEMIA [None]
